FAERS Safety Report 5398143-1 (Version None)
Quarter: 2007Q3

REPORT INFORMATION
  Report Type: 
  Country: None (occurrence: None)
  Receive Date: 20070726
  Receipt Date: 20070725
  Transmission Date: 20080115
  Serious: Yes (Hospitalization)
  Sender: FDA-Public Use
  Company Number: US-SHR-US-2006-038307

PATIENT
  Age: 21 Year
  Sex: Female
  Weight: 49.9 kg

DRUGS (1)
  1. MIRENA [Suspect]
     Indication: CONTRACEPTION
     Dosage: 20 A?G/DAY, CONT
     Route: 015
     Dates: start: 20061109

REACTIONS (6)
  - BREAST INFECTION [None]
  - GAIT DISTURBANCE [None]
  - GENITAL HAEMORRHAGE [None]
  - INFLUENZA [None]
  - PROCEDURAL PAIN [None]
  - VAGINAL PAIN [None]
